FAERS Safety Report 14947994 (Version 1)
Quarter: 2018Q2

REPORT INFORMATION
  Report Type: Spontaneous
  Country: US (occurrence: US)
  Receive Date: 20180508
  Receipt Date: 20180508
  Transmission Date: 20180711
  Serious: Yes (Life-Threatening)
  Sender: FDA-Public Use
  Company Number: None

PATIENT
  Age: 76 Year
  Sex: Male
  Weight: 90.72 kg

DRUGS (5)
  1. CAPTAPRIL [Concomitant]
  2. OXICODONE 5MG/ACETAMINOPHEN 325MG TAB [Suspect]
     Active Substance: ACETAMINOPHEN\OXYCODONE HYDROCHLORIDE
     Indication: LIMB INJURY
     Dosage: ?          QUANTITY:1 DF DOSAGE FORM;?
     Route: 048
     Dates: start: 20171117, end: 20171118
  3. HYDROCHLOROTHIZIDE [Concomitant]
     Active Substance: HYDROCHLOROTHIAZIDE
  4. MULTI VITAMIN [Concomitant]
     Active Substance: VITAMINS
  5. FISH OIL [Concomitant]
     Active Substance: FISH OIL

REACTIONS (15)
  - Visual impairment [None]
  - Dyspnoea [None]
  - Abdominal discomfort [None]
  - Loss of consciousness [None]
  - Hyperhidrosis [None]
  - Headache [None]
  - Musculoskeletal pain [None]
  - Pain [None]
  - Spinal pain [None]
  - Cognitive disorder [None]
  - Poor quality sleep [None]
  - Sneezing [None]
  - Intracranial pressure increased [None]
  - Tremor [None]
  - Cough [None]

NARRATIVE: CASE EVENT DATE: 20171128
